FAERS Safety Report 9269618 (Version 2)
Quarter: 2013Q2

REPORT INFORMATION
  Report Type: Spontaneous
  Country: US (occurrence: US)
  Receive Date: 20130503
  Receipt Date: 20130628
  Transmission Date: 20140414
  Serious: Yes (Other)
  Sender: FDA-Public Use
  Company Number: US-BAYER-2013-053861

PATIENT
  Age: 37 Year
  Sex: Female
  Weight: 91.16 kg

DRUGS (7)
  1. YASMIN [Suspect]
     Indication: POLYCYSTIC OVARIES
     Dosage: UNK
     Dates: start: 20090204, end: 20110321
  2. SULFAMETHOXAZOLE/TRIMETHOPRIM [Concomitant]
  3. LISINOPRIL HCT [Concomitant]
  4. IBUPROFEN [Concomitant]
     Dosage: UNK
  5. FAMOTIDINE [Concomitant]
  6. FENESIN [Concomitant]
  7. FLUTICASONE [Concomitant]

REACTIONS (11)
  - Pulmonary embolism [None]
  - Chest pain [None]
  - Palpitations [None]
  - Dizziness [None]
  - Injury [None]
  - General physical health deterioration [None]
  - Off label use [None]
  - Emotional distress [None]
  - Anxiety [None]
  - Anhedonia [None]
  - Pain [None]
